FAERS Safety Report 5780175-2 (Version None)
Quarter: 2008Q2

REPORT INFORMATION
  Report Type: 
  Country: None (occurrence: None)
  Receive Date: 20080620
  Receipt Date: 20080611
  Transmission Date: 20081010
  Serious: Yes (Hospitalization)
  Sender: FDA-Public Use
  Company Number: US-ABBOTT-08P-163-0451861-00

PATIENT
  Sex: Female
  Weight: 32.234 kg

DRUGS (8)
  1. HUMIRA [Suspect]
     Indication: CROHN'S DISEASE
     Route: 058
     Dates: start: 20070401, end: 20080401
  2. HUMIRA [Suspect]
     Dates: start: 20070101, end: 20070301
  3. METHOTREXATE [Concomitant]
     Indication: CROHN'S DISEASE
  4. MESALAMINE [Concomitant]
     Indication: CROHN'S DISEASE
  5. METHADONE HCL [Concomitant]
     Indication: PAIN
     Route: 048
  6. FENTANYL-100 [Concomitant]
     Indication: PAIN
     Dosage: LOLLIPOPS
     Route: 048
  7. CLONAZEPAM [Concomitant]
     Indication: MALABSORPTION
     Dosage: MELT ON TONGUE
  8. PROCHLORPERAZINE EDISYLATE [Concomitant]
     Indication: NAUSEA

REACTIONS (9)
  - CANDIDIASIS [None]
  - DEHYDRATION [None]
  - FATIGUE [None]
  - FUNGAL INFECTION [None]
  - INTESTINAL OBSTRUCTION [None]
  - INTESTINAL OPERATION [None]
  - INTESTINAL STENOSIS [None]
  - PAIN [None]
  - URINARY TRACT INFECTION [None]
